FAERS Safety Report 6237238-7 (Version None)
Quarter: 2009Q2

REPORT INFORMATION
  Report Type: 
  Country: None (occurrence: None)
  Receive Date: 20090619
  Receipt Date: 20090212
  Transmission Date: 20091009
  Serious: No
  Sender: FDA-Public Use
  Company Number: US-BAYER-200910504BCC

PATIENT
  Sex: Female
  Weight: 49 kg

DRUGS (6)
  1. ALEVE [Suspect]
     Indication: ARTHRITIS
     Dosage: UNIT DOSE: 220 MG
     Route: 048
  2. ALEVE [Suspect]
     Indication: ARTHRITIS
     Dosage: UNIT DOSE: 220 MG
     Route: 048
  3. PHENOBARBITAL TAB [Concomitant]
  4. DEPAKOTE [Concomitant]
  5. CENTRUM [Concomitant]
  6. CALCIUM [Concomitant]

REACTIONS (2)
  - FLUSHING [None]
  - NAUSEA [None]
